FAERS Safety Report 6644305-2 (Version None)
Quarter: 2010Q1

REPORT INFORMATION
  Report Type: 
  Country: None (occurrence: None)
  Receive Date: 20100322
  Receipt Date: 20100305
  Transmission Date: 20100710
  Serious: Yes (Hospitalization, Other)
  Sender: FDA-Public Use
  Company Number: PHEH2010US02919

PATIENT
  Sex: Female
  Weight: 45.351 kg

DRUGS (15)
  1. RECLAST [Suspect]
     Dosage: UNK
     Dates: start: 20090810
  2. HYDROXYCHLOROQUINE SULFATE [Concomitant]
     Dosage: 200 MG, QD
  3. SYNTHROID [Concomitant]
     Dosage: 0.05 MG, QD
  4. MEDROL [Concomitant]
     Dosage: 4 MG, QD
  5. LOPRESSOR [Concomitant]
     Dosage: 25 MG, BID
  6. PRILOSEC [Concomitant]
     Dosage: 20 MG, BID
  7. ALPRAZOLAM [Concomitant]
     Dosage: 0.5 MG, QID
  8. NORVASC [Concomitant]
     Dosage: 10 MG, QD
  9. ASPIRIN [Concomitant]
     Dosage: 81 MG, QD
     Route: 048
  10. ADVAIR DISKUS 100/50 [Concomitant]
     Dosage: 100/500 MCG ON PUFF BID
  11. NEURONTIN [Concomitant]
     Indication: HEADACHE
     Dosage: 600 MG, TID
  12. COUMADIN [Concomitant]
     Dosage: 7MG MWF, 6 MG REST OF THE DAYS OF THE WEEK
  13. GAMUNEX [Concomitant]
     Indication: IMMUNE SYSTEM DISORDER
     Dosage: MONTHLY
  14. CALCIUM WITH VITAMIN D [Concomitant]
     Dosage: 600 MG, UNK
  15. VITAMINS [Concomitant]

REACTIONS (4)
  - DYSPHAGIA [None]
  - MIGRAINE [None]
  - OESOPHAGEAL DILATION PROCEDURE [None]
  - WEIGHT DECREASED [None]
